FAERS Safety Report 21028221 (Version 2)
Quarter: 2022Q3

REPORT INFORMATION
  Report Type: Spontaneous
  Country: CH (occurrence: CH)
  Receive Date: 20220630
  Receipt Date: 20220726
  Transmission Date: 20221027
  Serious: Yes (Other)
  Sender: FDA-Public Use
  Company Number: CH-CISBIO-2022000251

PATIENT
  Age: 39 Year
  Sex: Female

DRUGS (4)
  1. TECHNETIUM TC-99M ALBUMIN AGGREGATED [Suspect]
     Active Substance: TECHNETIUM TC-99M ALBUMIN AGGREGATED
     Indication: Angiogram
     Route: 065
     Dates: start: 20220420, end: 20220420
  2. TECHNETIUM TC-99M ALBUMIN AGGREGATED [Suspect]
     Active Substance: TECHNETIUM TC-99M ALBUMIN AGGREGATED
     Indication: Angiogram
     Route: 065
     Dates: start: 20220601, end: 20220601
  3. TECHNETIUM TC-99M SODIUM PERTECHNETATE [Suspect]
     Active Substance: TECHNETIUM TC-99M SODIUM PERTECHNETATE
     Indication: Angiogram
     Route: 065
     Dates: start: 20220420, end: 20220420
  4. TECHNETIUM TC-99M SODIUM PERTECHNETATE [Suspect]
     Active Substance: TECHNETIUM TC-99M SODIUM PERTECHNETATE
     Indication: Angiogram
     Route: 065
     Dates: start: 20220601, end: 20220601

REACTIONS (4)
  - Pyrexia [Recovered/Resolved]
  - Erythema [Recovered/Resolved]
  - Tachycardia [Recovered/Resolved]
  - Product use in unapproved indication [Recovered/Resolved]

NARRATIVE: CASE EVENT DATE: 20220420
